FAERS Safety Report 5799398-1 (Version None)
Quarter: 2008Q3

REPORT INFORMATION
  Report Type: 
  Country: None (occurrence: None)
  Receive Date: 20080703
  Receipt Date: 20080624
  Transmission Date: 20090109
  Serious: Yes (Hospitalization, Other)
  Sender: FDA-Public Use
  Company Number: US-PFIZER INC-2008054102

PATIENT
  Sex: Female
  Weight: 70.3 kg

DRUGS (18)
  1. CHANTIX [Suspect]
     Indication: SMOKING CESSATION THERAPY
     Dates: start: 20071031, end: 20071201
  2. NOVOLIN 70/30 [Concomitant]
  3. NOVOLIN R [Concomitant]
  4. LISINOPRIL [Concomitant]
  5. VALIUM [Concomitant]
  6. SIMVASTATIN [Concomitant]
  7. VICODIN [Concomitant]
  8. NITROGLYCERIN [Concomitant]
  9. EFFEXOR XR [Concomitant]
  10. ALBUTEROL [Concomitant]
  11. PRIMATENE MIST [Concomitant]
  12. BENADRYL [Concomitant]
  13. LOPERAMIDE HYDROCHLORIDE [Concomitant]
  14. IBUPROFEN [Concomitant]
  15. GLUCOSAMINE [Concomitant]
  16. VITAMIN E [Concomitant]
  17. ASCORBIC ACID [Concomitant]
  18. MULTI-VITAMINS [Concomitant]

REACTIONS (6)
  - DEHYDRATION [None]
  - DEPRESSION [None]
  - MALNUTRITION [None]
  - STENT PLACEMENT [None]
  - SUICIDAL IDEATION [None]
  - VASCULAR GRAFT [None]
